FAERS Safety Report 12818597 (Version 2)
Quarter: 2016Q4

REPORT INFORMATION
  Report Type: Report from Study
  Country: MX (occurrence: MX)
  Receive Date: 20161006
  Receipt Date: 20161017
  Transmission Date: 20170207
  Serious: Yes (Hospitalization, Other)
  Sender: FDA-Public Use
  Company Number: MX-ORION CORPORATION ORION PHARMA-ENTC2016-0583

PATIENT
  Sex: Male
  Weight: 100 kg

DRUGS (4)
  1. NUBRENZA [Concomitant]
     Active Substance: ROTIGOTINE
     Route: 065
  2. NEXIUM [Concomitant]
     Active Substance: ESOMEPRAZOLE MAGNESIUM
     Route: 065
  3. PEMIX [Concomitant]
     Route: 065
  4. STALEVO [Suspect]
     Active Substance: CARBIDOPA\ENTACAPONE\LEVODOPA
     Indication: PARKINSON^S DISEASE
     Dosage: STRENGTH: 200/50/200 MG
     Route: 048

REACTIONS (6)
  - Feeling abnormal [Unknown]
  - Drug ineffective [Unknown]
  - Spinal cord disorder [Unknown]
  - Dysphonia [Unknown]
  - Constipation [Recovering/Resolving]
  - Parkinsonian crisis [Unknown]

NARRATIVE: CASE EVENT DATE: 2008
